FAERS Safety Report 7919610-X (Version None)
Quarter: 2011Q4

REPORT INFORMATION
  Report Type: 
  Country: None (occurrence: None)
  Receive Date: 20111116
  Receipt Date: 20111116
  Transmission Date: 20120403
  Serious: Yes (Hospitalization)
  Sender: FDA-Public Use
  Company Number: None

PATIENT
  Age: 72 Year
  Weight: 127.6 kg

DRUGS (19)
  1. KEFLEX [Suspect]
     Indication: CELLULITIS
     Dosage: PO RECENT
     Route: 048
  2. XALATAN [Concomitant]
  3. ASPIRIN [Concomitant]
  4. AMBIEN [Concomitant]
  5. OS-CAL [Concomitant]
  6. CLARITIN [Concomitant]
  7. PRILOSEC [Concomitant]
  8. TETRIX [Concomitant]
  9. M.V.I. [Concomitant]
  10. PIMECROLIMUS [Concomitant]
  11. TRAMADOL HCL [Concomitant]
  12. LISINOPRIL [Concomitant]
  13. ASPIRIN [Concomitant]
  14. CLINDAMYCIN [Concomitant]
  15. METRONDAZOLE [Concomitant]
  16. A-UGN [Concomitant]
  17. LYRICA [Concomitant]
  18. BETAMETHASONE [Concomitant]
  19. HYDROCORTISONE [Concomitant]

REACTIONS (5)
  - ERYTHEMA [None]
  - CONDITION AGGRAVATED [None]
  - DRUG ERUPTION [None]
  - RASH PRURITIC [None]
  - SKIN DISCOLOURATION [None]
